FAERS Safety Report 4417028-8 (Version None)
Quarter: 2004Q2

REPORT INFORMATION
  Report Type: 
  Country: None (occurrence: None)
  Receive Date: 20040629
  Receipt Date: 20040310
  Transmission Date: 20050107
  Serious: No
  Sender: FDA-Public Use
  Company Number: US068981

PATIENT
  Age: 79 Year
  Sex: Male

DRUGS (6)
  1. ARANESP [Suspect]
     Indication: ANAEMIA OF MALIGNANT DISEASE
     Dosage: 200 MCG, 1 IN 2 WEEKS, SC
     Route: 058
     Dates: start: 20040310
  2. LEUPROLIDE ACETATE [Concomitant]
  3. BICALUTAMIDE [Concomitant]
  4. GOSERELIN [Concomitant]
  5. LANSOPRAZOLE [Concomitant]
  6. FUROSEMIDE [Concomitant]

REACTIONS (4)
  - ARTHRALGIA [None]
  - BACK PAIN [None]
  - DIZZINESS [None]
  - LOCALISED OEDEMA [None]
